FAERS Safety Report 19691943 (Version 1)
Quarter: 2021Q3

REPORT INFORMATION
  Report Type: Spontaneous
  Country: US (occurrence: US)
  Receive Date: 20210812
  Receipt Date: 20210812
  Transmission Date: 20211014
  Serious: No
  Sender: FDA-Public Use
  Company Number: US-BIOGEN-2018BI00628759

PATIENT
  Sex: Female

DRUGS (24)
  1. VITAMIN D [Concomitant]
     Active Substance: VITAMIN D NOS
     Route: 050
  2. CALCIUM [Concomitant]
     Active Substance: CALCIUM
     Route: 050
  3. FLONASE [Concomitant]
     Active Substance: FLUTICASONE PROPIONATE
     Route: 050
  4. VITAMIN B12 [Concomitant]
     Active Substance: CYANOCOBALAMIN
     Route: 050
  5. BIOTIN [Concomitant]
     Active Substance: BIOTIN
     Route: 050
  6. TIZANIDINE HYDROCHLORIDE. [Concomitant]
     Active Substance: TIZANIDINE HYDROCHLORIDE
     Route: 050
  7. ACIDOPHILUS [Concomitant]
     Active Substance: LACTOBACILLUS ACIDOPHILUS
     Route: 050
  8. FOLIC ACID. [Concomitant]
     Active Substance: FOLIC ACID
     Route: 050
  9. PLEGRIDY [Suspect]
     Active Substance: PEGINTERFERON BETA-1A
     Indication: MULTIPLE SCLEROSIS
     Dosage: INJECT 125MCG SUBCUTANEOUSLY EVERY 2 WEEKS
     Route: 050
     Dates: start: 20150402
  10. GABAPENTIN. [Concomitant]
     Active Substance: GABAPENTIN
     Route: 050
  11. HYDROCHLOROTHIAZIDE. [Concomitant]
     Active Substance: HYDROCHLOROTHIAZIDE
     Route: 050
  12. PRAVASTATIN SODIUM. [Concomitant]
     Active Substance: PRAVASTATIN SODIUM
     Route: 050
  13. ASPIRIN LOW DOSE [Concomitant]
     Active Substance: ASPIRIN
     Route: 050
  14. CASSIA [Concomitant]
     Route: 050
  15. TYLENOL EXTRA STRENGTH [Concomitant]
     Active Substance: ACETAMINOPHEN
     Route: 050
  16. MAGNESIUM [Concomitant]
     Active Substance: MAGNESIUM
     Route: 050
  17. FLAXSEED [Concomitant]
     Active Substance: FLAX SEED
     Route: 050
  18. BACLOFEN. [Concomitant]
     Active Substance: BACLOFEN
     Route: 050
  19. CELEBREX [Concomitant]
     Active Substance: CELECOXIB
     Route: 050
  20. RITALIN [Concomitant]
     Active Substance: METHYLPHENIDATE HYDROCHLORIDE
     Route: 050
  21. ALTACE [Concomitant]
     Active Substance: RAMIPRIL
     Route: 050
  22. ALBUTEROL SULFATE. [Concomitant]
     Active Substance: ALBUTEROL SULFATE
     Route: 050
  23. VITAMIN C [Concomitant]
     Active Substance: ASCORBIC ACID
     Route: 050
  24. CINNAMON BARK [Concomitant]
     Active Substance: CINNAMON\HERBALS
     Route: 050

REACTIONS (3)
  - Scratch [Unknown]
  - Influenza like illness [Recovered/Resolved]
  - Drug delivery system malfunction [Unknown]
